FAERS Safety Report 22946643 (Version 2)
Quarter: 2023Q4

REPORT INFORMATION
  Report Type: Spontaneous
  Country: FR (occurrence: FR)
  Receive Date: 20230915
  Receipt Date: 20231030
  Transmission Date: 20240109
  Serious: Yes (Hospitalization)
  Sender: FDA-Public Use
  Company Number: None

PATIENT
  Age: 44 Year
  Sex: Female
  Weight: 79 kg

DRUGS (2)
  1. SILDENAFIL [Suspect]
     Active Substance: SILDENAFIL
     Indication: Weight decreased
     Dates: start: 20230315, end: 20230721
  2. SIBUTRAMINE HYDROCHLORIDE MONOHYDRATE [Suspect]
     Active Substance: SIBUTRAMINE HYDROCHLORIDE
     Indication: Weight decreased
     Dosage: CHLORHYDRATE DE SIBUTRAMINE MONOHYDRATE
     Dates: start: 20230315, end: 20230721

REACTIONS (2)
  - Ischaemic stroke [Recovered/Resolved]
  - Suspected counterfeit product [Unknown]

NARRATIVE: CASE EVENT DATE: 20230315
